FAERS Safety Report 12683393 (Version 2)
Quarter: 2016Q3

REPORT INFORMATION
  Report Type: Spontaneous
  Country: US (occurrence: US)
  Receive Date: 20160825
  Receipt Date: 20160830
  Transmission Date: 20161109
  Serious: No
  Sender: FDA-Public Use
  Company Number: US-PFIZER INC-2016398093

PATIENT
  Sex: Female

DRUGS (1)
  1. HYDROCORTISONE. [Suspect]
     Active Substance: HYDROCORTISONE
     Dosage: UNK
     Dates: start: 201511

REACTIONS (5)
  - Malaise [Recovering/Resolving]
  - Asthenopia [Recovering/Resolving]
  - Ocular discomfort [Recovering/Resolving]
  - Headache [Recovering/Resolving]
  - Muscular weakness [Recovering/Resolving]
